FAERS Safety Report 5965160-X (Version None)
Quarter: 2008Q4

REPORT INFORMATION
  Report Type: 
  Country: None (occurrence: None)
  Receive Date: 20081125
  Receipt Date: 20081111
  Transmission Date: 20090506
  Serious: Yes (Hospitalization)
  Sender: FDA-Public Use
  Company Number: IT-KINGPHARMUSA00001-K200801302

PATIENT
  Age: 22 Year
  Sex: Female

DRUGS (1)
  1. TAPAZOLE [Suspect]
     Indication: BASEDOW'S DISEASE
     Dosage: 30 MG, QD
     Route: 048
     Dates: start: 20021201

REACTIONS (3)
  - HEADACHE [None]
  - PARAESTHESIA [None]
  - VASCULITIS CEREBRAL [None]
